FAERS Safety Report 19198305 (Version 1)
Quarter: 2021Q2

REPORT INFORMATION
  Report Type: Spontaneous
  Country: US (occurrence: US)
  Receive Date: 20210430
  Receipt Date: 20210430
  Transmission Date: 20210717
  Serious: Yes (Other)
  Sender: FDA-Public Use
  Company Number: US-AMGEN-USASP2021064024

PATIENT
  Age: 57 Year
  Sex: Male

DRUGS (11)
  1. METHOTREXATE. [Concomitant]
     Active Substance: METHOTREXATE
     Indication: LARGE GRANULAR LYMPHOCYTOSIS
     Dosage: 10 MILLIGRAM/SQ. METER, QWK
     Route: 048
     Dates: start: 201210, end: 201305
  2. CYCLOPHOSPHAMIDE. [Concomitant]
     Active Substance: CYCLOPHOSPHAMIDE
     Indication: LARGE GRANULAR LYMPHOCYTOSIS
     Dosage: 50 MILLIGRAM, QD
     Route: 048
     Dates: start: 201305, end: 201403
  3. CYCLOSPORINE. [Concomitant]
     Active Substance: CYCLOSPORINE
     Indication: LARGE GRANULAR LYMPHOCYTOSIS
     Dosage: 50 MILLIGRAM, QD
     Route: 048
     Dates: start: 201305, end: 201802
  4. BELINOSTAT [Concomitant]
     Active Substance: BELINOSTAT
     Indication: LARGE GRANULAR LYMPHOCYTOSIS
     Dosage: 1000 MG/M INTRAVENOUSLY ON DAYS 1?5 OF A 21?DAY CYCLE (1900 MG DOSE AT EACH TREATMENT)
     Route: 042
     Dates: start: 201803
  5. SULFAMETHOXAZOLE AND TRIMETHOPRIM [Concomitant]
     Active Substance: SULFAMETHOXAZOLE\TRIMETHOPRIM
     Indication: INFECTION PROPHYLAXIS
  6. BELINOSTAT [Concomitant]
     Active Substance: BELINOSTAT
     Indication: LARGE GRANULAR LYMPHOCYTOSIS
  7. EPOETIN ALFA [Suspect]
     Active Substance: ERYTHROPOIETIN
     Indication: ANAEMIA
     Dosage: UNK
     Route: 065
     Dates: start: 201303, end: 201501
  8. EPOETIN ALFA [Suspect]
     Active Substance: ERYTHROPOIETIN
     Dosage: UNK (DOSE TAPERED)
     Route: 065
     Dates: start: 201501, end: 201603
  9. FLUCONAZOLE. [Concomitant]
     Active Substance: FLUCONAZOLE
     Indication: INFECTION PROPHYLAXIS
  10. EPOETIN ALFA [Suspect]
     Active Substance: ERYTHROPOIETIN
     Dosage: 40000 UNITS, QWK
     Route: 065
     Dates: start: 201703
  11. ACYCLOVIR [ACICLOVIR SODIUM] [Concomitant]
     Active Substance: ACYCLOVIR
     Indication: INFECTION PROPHYLAXIS

REACTIONS (2)
  - Anaemia [Unknown]
  - Therapeutic product effect decreased [Unknown]
